FAERS Safety Report 7632289-X (Version None)
Quarter: 2011Q3

REPORT INFORMATION
  Report Type: 
  Country: None (occurrence: None)
  Receive Date: 20110725
  Receipt Date: 20100715
  Transmission Date: 20111222
  Serious: No
  Sender: FDA-Public Use
  Company Number: US-BRISTOL-MYERS SQUIBB COMPANY-15194632

PATIENT
  Sex: Female

DRUGS (1)
  1. COUMADIN [Suspect]
     Dosage: 5MG ON WEDNESDAY AND SATURDAYS FOR 3-4 YEARS

REACTIONS (2)
  - GINGIVAL BLEEDING [None]
  - EPISTAXIS [None]
